FAERS Safety Report 4326914-9 (Version None)
Quarter: 2004Q1

REPORT INFORMATION
  Report Type: 
  Country: None (occurrence: None)
  Receive Date: 20040319
  Receipt Date: 20040123
  Transmission Date: 20041129
  Serious: No
  Sender: FDA-Public Use
  Company Number: US-JNJFOC-20040105613

PATIENT
  Age: 5 Month
  Sex: Male
  Weight: 17.9 kg

DRUGS (1)
  1. ORTHO EVRA [Suspect]
     Indication: MATERNAL DRUGS AFFECTING FOETUS
     Dosage: 1 DOSE, 3 IN 4 WEEK, TRANSDERMAL
     Route: 062

REACTIONS (3)
  - HUNGER [None]
  - INSOMNIA [None]
  - IRRITABILITY [None]
